FAERS Safety Report 22167007 (Version 1)
Quarter: 2023Q1

REPORT INFORMATION
  Report Type: Spontaneous
  Country: US (occurrence: None)
  Receive Date: 20230330
  Receipt Date: 20230330
  Transmission Date: 20230417
  Serious: No
  Sender: FDA-Public Use
  Company Number: None

PATIENT
  Age: 72 Year
  Sex: Male
  Weight: 81.65 kg

DRUGS (3)
  1. XIFAXAN [Suspect]
     Active Substance: RIFAXIMIN
     Indication: Eructation
     Dosage: OTHER FREQUENCY : 1 TAB 3 TIMES A DA;?
     Route: 048
     Dates: start: 20230109, end: 20230221
  2. XIFAXAN [Suspect]
     Active Substance: RIFAXIMIN
     Indication: Abdominal distension
  3. XIFAXAN [Suspect]
     Active Substance: RIFAXIMIN
     Indication: Diarrhoea

REACTIONS (4)
  - Cardio-respiratory arrest [None]
  - Acute myocardial infarction [None]
  - Vomiting [None]
  - Diarrhoea [None]
